FAERS Safety Report 4310355-4 (Version None)
Quarter: 2004Q1

REPORT INFORMATION
  Report Type: 
  Country: None (occurrence: None)
  Receive Date: 20040303
  Receipt Date: 20040223
  Transmission Date: 20041129
  Serious: Yes (Hospitalization)
  Sender: FDA-Public Use
  Company Number: JP-ROCHE-359554

PATIENT
  Age: 34 Year
  Sex: Male

DRUGS (16)
  1. MYCOPHENOLATE MOFETIL [Suspect]
     Route: 048
     Dates: start: 20010701, end: 20010722
  2. MYCOPHENOLATE MOFETIL [Suspect]
     Route: 048
     Dates: start: 20010723, end: 20010726
  3. MYCOPHENOLATE MOFETIL [Suspect]
     Route: 048
     Dates: start: 20010727, end: 20011105
  4. MYCOPHENOLATE MOFETIL [Suspect]
     Route: 048
     Dates: start: 20011106, end: 20030503
  5. MYCOPHENOLATE MOFETIL [Suspect]
     Route: 048
     Dates: start: 20030504
  6. NEORAL [Suspect]
     Route: 048
     Dates: start: 20010613
  7. PREDONINE [Suspect]
     Route: 048
     Dates: start: 20010613
  8. ADALAT [Concomitant]
     Route: 048
     Dates: start: 20010623
  9. NICARDIPINE HCL [Concomitant]
     Route: 048
     Dates: start: 20010711
  10. MAGNESIUM OXIDE [Concomitant]
     Route: 048
     Dates: start: 20010623
  11. ALTAT [Concomitant]
     Route: 048
     Dates: start: 20011105
  12. MEVALOTIN [Concomitant]
     Route: 048
     Dates: start: 20011012
  13. BAKTAR [Concomitant]
     Route: 048
     Dates: start: 20010924
  14. FUNGIZONE [Concomitant]
     Route: 048
     Dates: start: 20010613, end: 20030514
  15. BLOPRESS [Concomitant]
     Route: 048
     Dates: start: 20011015
  16. SELBEX [Concomitant]
     Route: 048
     Dates: start: 20020913, end: 20020919

REACTIONS (2)
  - CYTOMEGALOVIRUS INFECTION [None]
  - EPIDIDYMITIS [None]
